FAERS Safety Report 8315608 (Version 5)
Quarter: 2012Q4

REPORT INFORMATION
  Report Type: 
  Country: JP (occurrence: JP)
  Receive Date: 20111229
  Receipt Date: 20121228
  Transmission Date: 20130627
  Serious: Yes (Death, Hospitalization)
  Sender: FDA-Public Use
  Company Number: JP-ROCHE-635121

PATIENT
  Age: 56 None
  Sex: Female
  Weight: 44 kg

DRUGS (11)
  1. TOCILIZUMAB [Suspect]
     Indication: RHEUMATOID ARTHRITIS
     Route: 041
     Dates: start: 20090120, end: 20090120
  2. TOCILIZUMAB [Suspect]
     Route: 041
     Dates: start: 20090217, end: 20090217
  3. TOCILIZUMAB [Suspect]
     Route: 041
     Dates: start: 20090401, end: 20090401
  4. PREDONINE [Suspect]
     Indication: RHEUMATOID ARTHRITIS
     Route: 048
  5. PREDONINE [Suspect]
     Route: 048
  6. PROGRAF [Suspect]
     Indication: RHEUMATOID ARTHRITIS
     Route: 048
     Dates: start: 20090510
  7. LOXONIN [Concomitant]
     Indication: RHEUMATOID ARTHRITIS
     Dosage: DRUG: LOXOPROFEN SODIUM
     Route: 048
  8. MUCOSTA [Concomitant]
     Route: 048
  9. GASTER [Concomitant]
     Indication: GASTROOESOPHAGEAL REFLUX DISEASE
     Route: 048
  10. ALFAROL [Concomitant]
     Indication: OSTEOPOROSIS
     Route: 048
  11. RHEUMATREX [Concomitant]
     Indication: RHEUMATOID ARTHRITIS
     Route: 048

REACTIONS (6)
  - Interstitial lung disease [Fatal]
  - Interstitial lung disease [Recovered/Resolved]
  - Pneumocystis jiroveci pneumonia [Recovered/Resolved]
  - Arthritis bacterial [Recovered/Resolved]
  - Infection [Unknown]
  - Bronchitis [Recovering/Resolving]
